FAERS Safety Report 19672323 (Version 4)
Quarter: 2022Q4

REPORT INFORMATION
  Report Type: Other
  Country: US (occurrence: None)
  Receive Date: 20210808
  Receipt Date: 20221026
  Transmission Date: 20230113
  Serious: Yes (Disabling)
  Sender: FDA-Public Use
  Company Number: US-ROCHE-2884797

PATIENT
  Age: 15 Year
  Sex: Female
  Weight: 47.3 kg

DRUGS (3)
  1. EVRYSDI [Suspect]
     Active Substance: RISDIPLAM
     Indication: Muscle atrophy
     Dosage: 0.75 MG/ML, DATE OF SERVICE: 14/JUL/2021
     Route: 048
     Dates: start: 20210618
  2. EVRYSDI [Suspect]
     Active Substance: RISDIPLAM
     Indication: Spinal muscular atrophy
  3. GABAPENTIN [Concomitant]
     Active Substance: GABAPENTIN
     Route: 048
     Dates: start: 20220620

REACTIONS (6)
  - Fatigue [Recovering/Resolving]
  - Muscle contractions involuntary [Unknown]
  - Facial paresis [Unknown]
  - Asthenia [Unknown]
  - Hyporeflexia [Unknown]
  - Tremor [Unknown]
